FAERS Safety Report 4923278-4 (Version None)
Quarter: 2006Q1

REPORT INFORMATION
  Report Type: 
  Country: None (occurrence: None)
  Receive Date: 20060227
  Receipt Date: 20060213
  Transmission Date: 20060701
  Serious: Yes (Hospitalization)
  Sender: FDA-Public Use
  Company Number: FR-RB-2776-2006

PATIENT
  Age: 24 Year
  Sex: Female
  Weight: 50 kg

DRUGS (1)
  1. BUPRENORPHINE HCL [Suspect]
     Indication: DRUG DEPENDENCE
     Dosage: DOSAGE UNKNOWN
     Route: 042
     Dates: end: 20000705

REACTIONS (6)
  - ARTHRITIS BACTERIAL [None]
  - HYPERGAMMAGLOBULINAEMIA [None]
  - INTENTIONAL DRUG MISUSE [None]
  - INTERVERTEBRAL DISCITIS [None]
  - METHICILLIN-RESISTANT STAPHYLOCOCCAL AUREUS TEST POSITIVE [None]
  - NORMOCHROMIC NORMOCYTIC ANAEMIA [None]
